FAERS Safety Report 20706021 (Version 4)
Quarter: 2022Q2

REPORT INFORMATION
  Report Type: Report from Study
  Country: CN (occurrence: CN)
  Receive Date: 20220413
  Receipt Date: 20220621
  Transmission Date: 20220721
  Serious: Yes (Life-Threatening, Other)
  Sender: FDA-Public Use
  Company Number: CN-BRISTOL-MYERS SQUIBB COMPANY-2022-016292

PATIENT
  Age: 78 Year
  Sex: Male
  Weight: 72 kg

DRUGS (18)
  1. AZACITIDINE [Suspect]
     Active Substance: AZACITIDINE
     Indication: Myelodysplastic syndrome
     Dosage: 7 DAYS WITHIN 9 CALENDAR DAYS PER CYCLE, CYCLE=28DAYS
     Route: 058
     Dates: start: 20220223, end: 20220301
  2. VENETOCLAX [Suspect]
     Active Substance: VENETOCLAX
     Indication: Myelodysplastic syndrome
     Dosage: DAYS 1-14 OF EACH 28-DAY CYCLE
     Route: 048
     Dates: start: 20220223, end: 20220308
  3. LANSOPRAZOLE [Concomitant]
     Active Substance: LANSOPRAZOLE
     Indication: Prophylaxis
     Dosage: 1 IN 1 D
     Route: 041
     Dates: start: 20220222, end: 20220327
  4. LANSOPRAZOLE [Concomitant]
     Active Substance: LANSOPRAZOLE
     Indication: Prophylaxis
     Dosage: 1 IN 1 D
     Route: 041
     Dates: start: 20220213, end: 20220215
  5. LANSOPRAZOLE [Concomitant]
     Active Substance: LANSOPRAZOLE
     Indication: Gastric disorder
  6. MAGNESIUM ISOGLYCYRRHIZINATE [Concomitant]
     Active Substance: MAGNESIUM ISOGLYCYRRHIZINATE
     Indication: Alanine aminotransferase increased
     Dosage: 1 IN 1 D
     Route: 041
     Dates: start: 20220213, end: 20220327
  7. MAGNESIUM ISOGLYCYRRHIZINATE [Concomitant]
     Active Substance: MAGNESIUM ISOGLYCYRRHIZINATE
     Indication: Aspartate aminotransferase increased
  8. MAGNESIUM ISOGLYCYRRHIZINATE [Concomitant]
     Active Substance: MAGNESIUM ISOGLYCYRRHIZINATE
     Indication: Liver disorder
  9. MOSAPRIDE CITRATE [Concomitant]
     Active Substance: MOSAPRIDE CITRATE
     Indication: Gastric disorder
     Dosage: 3 IN 1 D
     Route: 048
     Dates: start: 20220321, end: 20220327
  10. MOSAPRIDE CITRATE [Concomitant]
     Active Substance: MOSAPRIDE CITRATE
     Indication: Abdominal distension
     Dosage: 1 IN 1 D
     Route: 048
     Dates: start: 20220225, end: 20220312
  11. ADENOSINE MONOPHOSPHATE FOR INJECTION [Concomitant]
     Indication: Infection
     Dates: start: 20220213, end: 20220327
  12. BIAPENEM FOR INJECTION [Concomitant]
     Indication: Pneumonia
     Dosage: 3 IN 1 D
     Route: 041
     Dates: start: 20220312, end: 20220312
  13. BIAPENEM FOR INJECTION [Concomitant]
     Dosage: 4 IN 1 D
     Route: 041
     Dates: start: 20220313, end: 20220322
  14. BICYCLOL PIECE [Concomitant]
     Indication: Liver disorder
     Dosage: 3 IN 1 D
     Route: 048
     Dates: start: 20220323, end: 20220327
  15. HUMAN ALBUMIN SOLUTION [Concomitant]
     Indication: Hypoalbuminaemia
     Dosage: 2 IN 1 D
     Route: 041
     Dates: start: 20220324, end: 20220327
  16. VIDARABINE PHOSPHATE [Concomitant]
     Active Substance: VIDARABINE PHOSPHATE
     Indication: Viral infection
     Dosage: 1 IN 1 D
     Route: 041
     Dates: start: 20220213, end: 20220327
  17. SODIUM CREATINE PHOSPHATE FOR INJECTION [Concomitant]
     Indication: Cardiomyopathy
     Dosage: 1 IN 1 D
     Route: 041
     Dates: start: 20220213, end: 20220310
  18. VORICONAZOLE [Concomitant]
     Active Substance: VORICONAZOLE
     Indication: Product used for unknown indication
     Dosage: 2 IN 1 D
     Route: 041
     Dates: start: 20220317, end: 20220322

REACTIONS (2)
  - Respiratory failure [Recovered/Resolved]
  - Pneumonia [Not Recovered/Not Resolved]

NARRATIVE: CASE EVENT DATE: 20220326
